FAERS Safety Report 9441948 (Version 1)
Quarter: 2013Q3

REPORT INFORMATION
  Report Type: Spontaneous
  Country: TH (occurrence: TH)
  Receive Date: 20130806
  Receipt Date: 20130806
  Transmission Date: 20140515
  Serious: Yes (Other)
  Sender: FDA-Public Use
  Company Number: TH-GENZYME-THYM-1003908

PATIENT
  Age: 24 Year
  Sex: Male
  Weight: 50 kg

DRUGS (4)
  1. THYMOGLOBULINE [Suspect]
     Indication: APLASTIC ANAEMIA
     Dosage: 175 MG, QD (DAY 1-3)
     Route: 042
     Dates: start: 20130704, end: 20130707
  2. THYMOGLOBULINE [Suspect]
     Dosage: 175 MG, QD (DAY 4 AND DAY 5)
     Route: 042
     Dates: start: 20130709, end: 20130710
  3. METHYLPREDNISOLONE [Concomitant]
     Indication: APLASTIC ANAEMIA
     Dosage: 1 G, QD
     Route: 042
     Dates: start: 20130704, end: 20130706
  4. CYCLOSPORINE [Concomitant]
     Indication: APLASTIC ANAEMIA
     Dosage: UNK
     Route: 065

REACTIONS (1)
  - Bradycardia [Recovered/Resolved]
